FAERS Safety Report 4705331-3 (Version None)
Quarter: 2005Q2

REPORT INFORMATION
  Report Type: 
  Country: None (occurrence: None)
  Receive Date: 20050629
  Receipt Date: 20050613
  Transmission Date: 20051028
  Serious: Yes (Other)
  Sender: FDA-Public Use
  Company Number: 2005088446

PATIENT
  Sex: Male

DRUGS (2)
  1. NATURAL CITRUS LISTERINE (MENTHOL, METHYL SALICYLATE, EUCALYPTOL, THYM [Suspect]
     Indication: EAR DISORDER
     Dosage: ENOUGH TO WET THE QTIP
     Dates: start: 20050613, end: 20050613
  2. GLIPIZIDE [Concomitant]

REACTIONS (1)
  - DEAFNESS BILATERAL [None]
